FAERS Safety Report 6016294-5 (Version None)
Quarter: 2008Q4

REPORT INFORMATION
  Report Type: 
  Country: None (occurrence: None)
  Receive Date: 20081222
  Receipt Date: 20081216
  Transmission Date: 20090506
  Serious: Yes (Congenital Anomaly)
  Sender: FDA-Public Use
  Company Number: GB-TEVA-182783ISR

PATIENT

DRUGS (1)
  1. LAMOTRIGINE [Suspect]
     Indication: PETIT MAL EPILEPSY
     Route: 064

REACTIONS (1)
  - LIMB MALFORMATION [None]
